FAERS Safety Report 25512172 (Version 1)
Quarter: 2025Q3

REPORT INFORMATION
  Report Type: Spontaneous
  Country: US (occurrence: US)
  Receive Date: 20250703
  Receipt Date: 20250703
  Transmission Date: 20251020
  Serious: No
  Sender: RADIUS PHARM
  Company Number: US-RADIUS HEALTH INC.-2024US005124

PATIENT
  Age: 79 Year
  Sex: Male

DRUGS (2)
  1. TYMLOS [Suspect]
     Active Substance: ABALOPARATIDE
     Indication: Senile osteoporosis
     Route: 058
     Dates: start: 20240626
  2. ATORVASTATIN [Concomitant]
     Active Substance: ATORVASTATIN
     Indication: Product used for unknown indication

REACTIONS (11)
  - Abdominal distension [Unknown]
  - Abdominal discomfort [Unknown]
  - Back pain [Recovered/Resolved]
  - Constipation [Recovered/Resolved]
  - Lethargy [Unknown]
  - Muscular weakness [Unknown]
  - Fatigue [Unknown]
  - Insomnia [Unknown]
  - Feeling cold [Unknown]
  - Chills [Recovered/Resolved]
  - Product storage error [Unknown]

NARRATIVE: CASE EVENT DATE: 20240601
